FAERS Safety Report 8522753-3 (Version None)
Quarter: 2012Q3

REPORT INFORMATION
  Report Type: 
  Country: None (occurrence: None)
  Receive Date: 20120719
  Receipt Date: 20120712
  Transmission Date: 20120928
  Serious: No
  Sender: FDA-Public Use
  Company Number: US-009507513-1207USA005648

PATIENT

DRUGS (1)
  1. TIMOPTIC-XE [Suspect]
     Dosage: 1 DF, QD
     Route: 047

REACTIONS (3)
  - EYE DISORDER [None]
  - INTRAOCULAR PRESSURE INCREASED [None]
  - ABNORMAL SENSATION IN EYE [None]
